FAERS Safety Report 23929094 (Version 1)
Quarter: 2024Q2

REPORT INFORMATION
  Report Type: Spontaneous
  Country: PT (occurrence: PT)
  Receive Date: 20240601
  Receipt Date: 20240601
  Transmission Date: 20240716
  Serious: Yes (Other)
  Sender: FDA-Public Use
  Company Number: PT-JNJFOC-20240563681

PATIENT
  Age: 42 Year
  Sex: Female

DRUGS (3)
  1. RYBREVANT [Suspect]
     Active Substance: AMIVANTAMAB-VMJW
     Indication: Non-small cell lung cancer
     Dosage: ONE DOSE DIVIDED INTO TWO CONSECUTIVE DAYS (DAY 1: 350 MG IV; DAY 2: 700 MG IV)
     Route: 042
     Dates: start: 20230209
  2. ZOLMITRIPTAN [Concomitant]
     Active Substance: ZOLMITRIPTAN
  3. BILASTINE [Concomitant]
     Active Substance: BILASTINE

REACTIONS (2)
  - Paronychia [Unknown]
  - Vertebral lesion [Unknown]
